FAERS Safety Report 11459042 (Version 2)
Quarter: 2015Q4

REPORT INFORMATION
  Report Type: Spontaneous
  Country: US (occurrence: US)
  Receive Date: 20150904
  Receipt Date: 20151002
  Transmission Date: 20160304
  Serious: Yes (Other)
  Sender: FDA-Public Use
  Company Number: US-PFIZER INC-2015282054

PATIENT
  Age: 76 Year
  Sex: Female
  Weight: 79.4 kg

DRUGS (2)
  1. IBRANCE [Suspect]
     Active Substance: PALBOCICLIB
     Indication: BREAST CANCER
     Dosage: 75 MG, DAYS 1-21 Q 28 DAYS
     Route: 048
     Dates: start: 20150706
  2. IBRANCE [Suspect]
     Active Substance: PALBOCICLIB
     Dosage: 125 MG, CYCLIC (DAY 1-21 Q 28 DAYS)
     Route: 048

REACTIONS (4)
  - Oropharyngeal pain [Unknown]
  - Dyspnoea [Unknown]
  - Cough [Unknown]
  - Haemoglobin decreased [Recovered/Resolved]

NARRATIVE: CASE EVENT DATE: 20150819
